FAERS Safety Report 6841068-2 (Version None)
Quarter: 2010Q3

REPORT INFORMATION
  Report Type: 
  Country: None (occurrence: None)
  Receive Date: 20100714
  Receipt Date: 20070625
  Transmission Date: 20110219
  Serious: No
  Sender: FDA-Public Use
  Company Number: US-PFIZER INC-2007053388

PATIENT
  Sex: Female
  Weight: 56.4 kg

DRUGS (9)
  1. CHANTIX [Suspect]
     Indication: SMOKING CESSATION THERAPY
     Dates: start: 20070101
  2. ZETIA [Concomitant]
  3. TRICOR [Concomitant]
  4. METRONIDAZOLE [Concomitant]
  5. PREMARIN [Concomitant]
  6. MOEXIPRIL HYDROCHLORIDE [Concomitant]
  7. DETROL LA [Concomitant]
  8. MECLIZINE [Concomitant]
     Indication: VERTIGO
  9. NEXIUM [Concomitant]
     Indication: GASTROOESOPHAGEAL REFLUX DISEASE

REACTIONS (6)
  - ABDOMINAL DISTENSION [None]
  - DECREASED APPETITE [None]
  - DIARRHOEA [None]
  - FLATULENCE [None]
  - NIGHTMARE [None]
  - WEIGHT INCREASED [None]
